FAERS Safety Report 16365584 (Version 1)
Quarter: 2019Q2

REPORT INFORMATION
  Report Type: Spontaneous
  Country: IT (occurrence: IT)
  Receive Date: 20190529
  Receipt Date: 20190529
  Transmission Date: 20190711
  Serious: Yes (Other)
  Sender: FDA-Public Use
  Company Number: IT-ACCORD-129865

PATIENT
  Age: 68 Year
  Sex: Female

DRUGS (11)
  1. DIBASE [Concomitant]
     Active Substance: CHOLECALCIFEROL
  2. DOMPERIDONE [Concomitant]
     Active Substance: DOMPERIDONE
  3. DULOXETINE. [Concomitant]
     Active Substance: DULOXETINE
  4. METHOTREXATE. [Suspect]
     Active Substance: METHOTREXATE
     Indication: RHEUMATOID ARTHRITIS
     Route: 058
     Dates: start: 20170929
  5. OMEPRAZOLE. [Concomitant]
     Active Substance: OMEPRAZOLE
  6. SALAZOPYRIN EN [Suspect]
     Active Substance: SULFASALAZINE
     Indication: RHEUMATOID ARTHRITIS
     Route: 048
     Dates: start: 20170517
  7. PREDNISONE. [Concomitant]
     Active Substance: PREDNISONE
  8. LYRICA [Concomitant]
     Active Substance: PREGABALIN
  9. CARDIRENE [Concomitant]
     Active Substance: ASPIRIN DL-LYSINE
  10. FOLINA [FOLIC ACID] [Concomitant]
     Active Substance: FOLIC ACID
  11. PLAQUENIL [Suspect]
     Active Substance: HYDROXYCHLOROQUINE SULFATE
     Indication: RHEUMATOID ARTHRITIS
     Route: 048
     Dates: start: 20170517

REACTIONS (1)
  - Urinary tract infection bacterial [Recovered/Resolved]

NARRATIVE: CASE EVENT DATE: 20190130
